FAERS Safety Report 5250716-2 (Version None)
Quarter: 2007Q1

REPORT INFORMATION
  Report Type: 
  Country: None (occurrence: None)
  Receive Date: 20070228
  Receipt Date: 20060623
  Transmission Date: 20070707
  Serious: Yes (Other)
  Sender: FDA-Public Use
  Company Number: US-GLAXOSMITHKLINE-A0610164A

PATIENT
  Age: 21 Year
  Sex: Female

DRUGS (4)
  1. LAMICTAL [Suspect]
     Indication: BIPOLAR DISORDER
     Dosage: 25MG PER DAY
     Route: 048
     Dates: start: 20060601, end: 20060619
  2. SEROQUEL [Concomitant]
  3. CLONAZEPAM [Concomitant]
  4. ANTIBIOTIC [Concomitant]
     Indication: URINARY TRACT INFECTION

REACTIONS (1)
  - RASH [None]
